FAERS Safety Report 10482219 (Version 2)
Quarter: 2019Q4

REPORT INFORMATION
  Report Type: Spontaneous
  Country: DE (occurrence: DE)
  Receive Date: 20140929
  Receipt Date: 20191121
  Transmission Date: 20200122
  Serious: Yes (Congenital Anomaly, Other)
  Sender: FDA-Public Use
  Company Number: DE-MYLANLABS-2014M1004983

PATIENT
  Sex: Male
  Weight: 2.85 kg

DRUGS (6)
  1. LAMOTRIGINE. [Suspect]
     Active Substance: LAMOTRIGINE
     Indication: EPILEPSY
     Dosage: 350 MG, QD (250-0-100MG/D)
     Route: 064
     Dates: start: 20120921
  2. VIMPAT [Suspect]
     Active Substance: LACOSAMIDE
     Dosage: INCREASED DOSE
     Route: 064
     Dates: start: 20130605
  3. FOLIO                              /00349401/ [Concomitant]
     Active Substance: CYANOCOBALAMIN\FOLIC ACID
     Indication: VITAMIN SUPPLEMENTATION
     Dosage: 0.4 [MG/D ]
     Route: 064
  4. RIVOTRIL [Concomitant]
     Active Substance: CLONAZEPAM
     Indication: EPILEPSY
     Dosage: 2MG AS NEEDED (PRN)
     Route: 064
  5. LAMOTRIGINE. [Suspect]
     Active Substance: LAMOTRIGINE
     Dosage: DOSE INCREASED
     Route: 064
     Dates: start: 20130605
  6. VIMPAT [Suspect]
     Active Substance: LACOSAMIDE
     Indication: EPILEPSY
     Dosage: 450 [MG/D ]/ INCREASED TO 150-0-300
     Route: 064
     Dates: start: 20120921

REACTIONS (5)
  - Hypothermia neonatal [Recovered/Resolved]
  - Neonatal respiratory distress [Recovered/Resolved]
  - Premature baby [Recovered/Resolved]
  - Congenital melanocytic naevus [Not Recovered/Not Resolved]
  - Foetal exposure during pregnancy [Recovered/Resolved]

NARRATIVE: CASE EVENT DATE: 20120921
